FAERS Safety Report 11203068 (Version 1)
Quarter: 2015Q2

REPORT INFORMATION
  Report Type: Spontaneous
  Country: MX (occurrence: MX)
  Receive Date: 20150619
  Receipt Date: 20150619
  Transmission Date: 20150821
  Serious: Yes (Disabling, Other)
  Sender: FDA-Public Use
  Company Number: MX-SA-2015SA084644

PATIENT
  Age: 80 Year
  Sex: Male
  Weight: 70 kg

DRUGS (2)
  1. GLIMETAL [Concomitant]
     Indication: TYPE 2 DIABETES MELLITUS
     Dosage: (GLIMEPIRIDE + METFORMIN) (2 MG + 1000 MG; TABLET)
     Route: 048
     Dates: start: 1985
  2. PLAVIX [Suspect]
     Active Substance: CLOPIDOGREL BISULFATE
     Indication: PROPHYLAXIS
     Route: 048
     Dates: start: 2010, end: 2012

REACTIONS (2)
  - Amaurosis [Not Recovered/Not Resolved]
  - Conjunctivitis [Recovered/Resolved with Sequelae]

NARRATIVE: CASE EVENT DATE: 2012
